FAERS Safety Report 6984121-5 (Version None)
Quarter: 2010Q3

REPORT INFORMATION
  Report Type: 
  Country: None (occurrence: None)
  Receive Date: 20100915
  Receipt Date: 20090529
  Transmission Date: 20110219
  Serious: No
  Sender: FDA-Public Use
  Company Number: US-WYE-H09552109

PATIENT
  Sex: Female
  Weight: 111.23 kg

DRUGS (4)
  1. TYGACIL [Suspect]
     Indication: STENOTROPHOMONAS INFECTION
     Route: 042
  2. ALBUTEROL SULFATE AUTOHALER [Concomitant]
  3. PREDNISONE [Concomitant]
  4. CLAVULANIC ACID/TICARCILLIN DISODIUM [Concomitant]

REACTIONS (2)
  - ABDOMINAL PAIN UPPER [None]
  - BACK PAIN [None]
